FAERS Safety Report 24636467 (Version 2)
Quarter: 2024Q4

REPORT INFORMATION
  Report Type: Spontaneous
  Country: SE (occurrence: SE)
  Receive Date: 20241119
  Receipt Date: 20241219
  Transmission Date: 20250115
  Serious: Yes (Other)
  Sender: TEVA
  Company Number: SE-TEVA-VS-3264387

PATIENT
  Age: 12 Year
  Sex: Male

DRUGS (7)
  1. TESTOSTERONE [Suspect]
     Active Substance: TESTOSTERONE
     Indication: Hormone therapy
     Route: 065
  2. ELTROMBOPAG [Suspect]
     Active Substance: ELTROMBOPAG
     Indication: Congenital dyskeratosis
     Route: 065
  3. ELTROMBOPAG [Suspect]
     Active Substance: ELTROMBOPAG
     Indication: Congenital dyskeratosis
     Route: 065
  4. ELTROMBOPAG [Suspect]
     Active Substance: ELTROMBOPAG
     Indication: Congenital dyskeratosis
     Route: 065
  5. TRANEXAMIC ACID [Concomitant]
     Active Substance: TRANEXAMIC ACID
     Indication: Haematoma
  6. DANAZOL [Suspect]
     Active Substance: DANAZOL
     Indication: Congenital dyskeratosis
     Dosage: EQUIVALENT TO 5.3 MG/KG/DAY
     Route: 048
  7. DANAZOL [Suspect]
     Active Substance: DANAZOL
     Indication: Congenital dyskeratosis
     Dosage: EQUIVALENT TO 8.3 MG/KG/DAY
     Route: 048

REACTIONS (6)
  - Hepatic enzyme increased [Unknown]
  - Headache [Unknown]
  - Drug ineffective [Unknown]
  - Nausea [Unknown]
  - Abdominal pain [Unknown]
  - Off label use [Unknown]
